FAERS Safety Report 17389164 (Version 4)
Quarter: 2020Q1

REPORT INFORMATION
  Report Type: Spontaneous
  Country: BY (occurrence: BY)
  Receive Date: 20200206
  Receipt Date: 20200213
  Transmission Date: 20200409
  Serious: Yes (Other)
  Sender: FDA-Public Use
  Company Number: NVSC2020US028845

PATIENT
  Sex: Male
  Weight: 57 kg

DRUGS (14)
  1. CLOFAZIMINE [Suspect]
     Active Substance: CLOFAZIMINE
     Indication: TUBERCULOSIS
     Dosage: 100 MG, QD
     Route: 065
     Dates: start: 20180222
  2. MOXIFLOXACIN. [Suspect]
     Active Substance: MOXIFLOXACIN
     Indication: TUBERCULOSIS
     Dosage: 400 MG, QD
     Route: 048
     Dates: start: 20180222
  3. LINEZOLID. [Suspect]
     Active Substance: LINEZOLID
     Indication: TUBERCULOSIS
     Dosage: 600 MG, QD
     Route: 065
     Dates: start: 20180222
  4. OMEPRAZOLE. [Concomitant]
     Active Substance: OMEPRAZOLE
     Dosage: UNK
     Route: 065
     Dates: start: 20190823, end: 20190828
  5. DELAMANID [Suspect]
     Active Substance: DELAMANID
     Indication: TUBERCULOSIS
     Dosage: 200 MG, QD
     Route: 048
     Dates: start: 20180222
  6. OMEPRAZOLE. [Concomitant]
     Active Substance: OMEPRAZOLE
     Indication: PRODUCT USED FOR UNKNOWN INDICATION
     Dosage: UNK
     Route: 065
     Dates: start: 20180221, end: 20190123
  7. ESSENTICAPSUM [Concomitant]
     Indication: PRODUCT USED FOR UNKNOWN INDICATION
     Dosage: UNK
     Route: 065
     Dates: start: 20180222, end: 20191019
  8. CAPREOMYCIN [Suspect]
     Active Substance: CAPREOMYCIN
     Indication: TUBERCULOSIS
     Dosage: 1000 MG, QD
     Route: 030
     Dates: start: 20180222, end: 20180529
  9. ONDANSETRON [Concomitant]
     Active Substance: ONDANSETRON
     Indication: PRODUCT USED FOR UNKNOWN INDICATION
     Dosage: UNK
     Route: 065
     Dates: start: 20180306, end: 20190123
  10. AMOXICILLIN AND CLAVULANATE POTASSIUM [Suspect]
     Active Substance: AMOXICILLIN\CLAVULANATE POTASSIUM
     Indication: TUBERCULOSIS
     Dosage: 2500 MG, QD
     Route: 048
     Dates: start: 20180222
  11. IMIPENEM AND CILASTATIN SODIUM [Suspect]
     Active Substance: CILASTATIN SODIUM\IMIPENEM
     Indication: TUBERCULOSIS
     Dosage: 2000 MG, QD
     Route: 042
     Dates: start: 20180222
  12. PYRIDOXINE [Concomitant]
     Active Substance: PYRIDOXINE
     Indication: PRODUCT USED FOR UNKNOWN INDICATION
     Dosage: UNK
     Route: 065
     Dates: start: 20180222, end: 20190123
  13. PYRIDOXINE [Concomitant]
     Active Substance: PYRIDOXINE
     Dosage: UNK
     Route: 065
     Dates: start: 20190123, end: 20191019
  14. FERRONAL [Concomitant]
     Indication: PRODUCT USED FOR UNKNOWN INDICATION
     Dosage: UNK
     Route: 065
     Dates: start: 20180603, end: 20190123

REACTIONS (9)
  - Asthenia [Unknown]
  - Chronic gastritis [Unknown]
  - Anaemia [Recovered/Resolved]
  - Blood creatinine increased [Unknown]
  - Blood magnesium decreased [Unknown]
  - Blood calcium decreased [Unknown]
  - Visual impairment [Unknown]
  - Creatinine renal clearance decreased [Unknown]
  - Dizziness [Unknown]
